FAERS Safety Report 22111924 (Version 1)
Quarter: 2023Q1

REPORT INFORMATION
  Report Type: Spontaneous
  Country: CA (occurrence: CA)
  Receive Date: 20230318
  Receipt Date: 20230318
  Transmission Date: 20230417
  Serious: Yes (Hospitalization, Other)
  Sender: FDA-Public Use
  Company Number: CA-ABBVIE-4344591

PATIENT
  Age: 55 Year
  Sex: Male

DRUGS (25)
  1. HUMIRA [Suspect]
     Active Substance: ADALIMUMAB
     Indication: Product used for unknown indication
     Route: 058
  2. METHOTREXATE [Suspect]
     Active Substance: METHOTREXATE
     Indication: Product used for unknown indication
     Route: 065
     Dates: start: 2016
  3. INFLECTRA [Suspect]
     Active Substance: INFLIXIMAB-DYYB
     Indication: Product used for unknown indication
     Dosage: LAST ADMIN DATE 2020
     Route: 042
     Dates: start: 20200814
  4. INFLECTRA [Suspect]
     Active Substance: INFLIXIMAB-DYYB
     Indication: Product used for unknown indication
     Dosage: LAST ADMIN DATE 2022
     Route: 042
     Dates: start: 20220526
  5. INFLECTRA [Suspect]
     Active Substance: INFLIXIMAB-DYYB
     Indication: Product used for unknown indication
     Dosage: LAST ADMIN DATE 2022
     Route: 042
     Dates: start: 20220705
  6. INFLECTRA [Suspect]
     Active Substance: INFLIXIMAB-DYYB
     Indication: Product used for unknown indication
     Route: 042
     Dates: start: 20201205
  7. INFLECTRA [Suspect]
     Active Substance: INFLIXIMAB-DYYB
     Indication: Product used for unknown indication
     Dosage: LAST ADMIN DATE 2021
     Route: 042
     Dates: start: 20211005
  8. INFLECTRA [Suspect]
     Active Substance: INFLIXIMAB-DYYB
     Indication: Product used for unknown indication
     Dosage: LAST ADMIN DATE 2022
     Route: 042
     Dates: start: 20220922
  9. INFLECTRA [Suspect]
     Active Substance: INFLIXIMAB-DYYB
     Indication: Product used for unknown indication
     Dosage: LAST ADMIN DATE 2019
     Route: 042
     Dates: start: 20191122
  10. INFLECTRA [Suspect]
     Active Substance: INFLIXIMAB-DYYB
     Indication: Product used for unknown indication
     Route: 042
     Dates: start: 20221121
  11. INFLECTRA [Suspect]
     Active Substance: INFLIXIMAB-DYYB
     Indication: Product used for unknown indication
     Dosage: LAST ADMIN DATE 2020
     Route: 042
     Dates: start: 20200424
  12. INFLECTRA [Suspect]
     Active Substance: INFLIXIMAB-DYYB
     Indication: Product used for unknown indication
     Dosage: LAST ADMIN DATE 2020
     Route: 042
     Dates: start: 20200103
  13. INFLECTRA [Suspect]
     Active Substance: INFLIXIMAB-DYYB
     Indication: Product used for unknown indication
     Route: 042
     Dates: start: 20191206
  14. INFLECTRA [Suspect]
     Active Substance: INFLIXIMAB-DYYB
     Indication: Product used for unknown indication
     Dosage: LAST ADMIN DATE 2021
     Route: 042
     Dates: start: 20210127
  15. INFLECTRA [Suspect]
     Active Substance: INFLIXIMAB-DYYB
     Indication: Product used for unknown indication
     Dosage: LAST ADMIN DATE 2022
     Route: 042
     Dates: start: 20220422
  16. INFLECTRA [Suspect]
     Active Substance: INFLIXIMAB-DYYB
     Indication: Product used for unknown indication
     Dosage: LAST ADMIN DATE 2022
     Route: 042
     Dates: start: 20221024
  17. INFLECTRA [Suspect]
     Active Substance: INFLIXIMAB-DYYB
     Indication: Product used for unknown indication
     Dosage: LAST ADMIN DATE 2020
     Route: 042
     Dates: start: 20200226
  18. INFLECTRA [Suspect]
     Active Substance: INFLIXIMAB-DYYB
     Indication: Product used for unknown indication
     Dosage: LAST ADMIN DATE 2020
     Route: 042
     Dates: start: 20200619
  19. INFLECTRA [Suspect]
     Active Substance: INFLIXIMAB-DYYB
     Indication: Product used for unknown indication
     Dosage: LAST ADMIN DATE 2021
     Route: 058
     Dates: start: 20210308
  20. INFLECTRA [Suspect]
     Active Substance: INFLIXIMAB-DYYB
     Indication: Product used for unknown indication
     Dosage: LAST ADMIN DATE 2021
     Route: 042
     Dates: start: 20210824
  21. INFLECTRA [Suspect]
     Active Substance: INFLIXIMAB-DYYB
     Indication: Product used for unknown indication
     Dosage: LAST ADMIN DATE 2021
     Route: 042
     Dates: start: 20211116
  22. INFLECTRA [Suspect]
     Active Substance: INFLIXIMAB-DYYB
     Indication: Product used for unknown indication
     Dosage: LAST ADMIN DATE 2020
     Route: 042
     Dates: start: 20201009
  23. INFLECTRA [Suspect]
     Active Substance: INFLIXIMAB-DYYB
     Indication: Product used for unknown indication
     Dosage: LAST ADMIN DATE 2022
     Route: 042
     Dates: start: 20220816
  24. INFLECTRA [Suspect]
     Active Substance: INFLIXIMAB-DYYB
     Indication: Product used for unknown indication
     Dosage: LAST ADMIN DATE 2022
     Route: 042
     Dates: start: 20220302
  25. STELARA [Suspect]
     Active Substance: USTEKINUMAB
     Indication: Product used for unknown indication
     Route: 065

REACTIONS (17)
  - Fungal infection [Unknown]
  - Diarrhoea [Unknown]
  - Drug ineffective [Unknown]
  - Drug ineffective [Unknown]
  - Abdominal pain [Unknown]
  - Condition aggravated [Recovering/Resolving]
  - Drug ineffective [Unknown]
  - Blood pressure increased [Unknown]
  - Arthralgia [Unknown]
  - Aphthous ulcer [Unknown]
  - Off label use [Unknown]
  - Cough [Unknown]
  - Headache [Unknown]
  - Anal fistula [Unknown]
  - Chills [Unknown]
  - SARS-CoV-2 test positive [Recovered/Resolved]
  - Faeces soft [Unknown]

NARRATIVE: CASE EVENT DATE: 20200102
